FAERS Safety Report 14593762 (Version 2)
Quarter: 2018Q2

REPORT INFORMATION
  Report Type: Spontaneous
  Country: US (occurrence: US)
  Receive Date: 20180302
  Receipt Date: 20180604
  Transmission Date: 20180711
  Serious: Yes (Other)
  Sender: FDA-Public Use
  Company Number: US-009507513-1802USA013801

PATIENT
  Age: 67 Year
  Sex: Male

DRUGS (3)
  1. PIOGLITAZONE. [Concomitant]
     Active Substance: PIOGLITAZONE
  2. JANUVIA [Suspect]
     Active Substance: SITAGLIPTIN PHOSPHATE
     Indication: DIABETES MELLITUS
     Dosage: 100 MG / ONCE DAILY
     Route: 048
     Dates: start: 2016
  3. GLIPIZIDE. [Concomitant]
     Active Substance: GLIPIZIDE

REACTIONS (8)
  - Headache [Recovered/Resolved]
  - Blood glucose increased [Unknown]
  - Upper respiratory fungal infection [Unknown]
  - Diarrhoea [Unknown]
  - Influenza [Unknown]
  - Product quality issue [Unknown]
  - Insomnia [Unknown]
  - Medication residue present [Unknown]

NARRATIVE: CASE EVENT DATE: 2018
